FAERS Safety Report 10466858 (Version 1)
Quarter: 2014Q3

REPORT INFORMATION
  Report Type: Spontaneous
  Country: HR (occurrence: HR)
  Receive Date: 20140922
  Receipt Date: 20140922
  Transmission Date: 20150326
  Serious: Yes (Death, Hospitalization)
  Sender: FDA-Public Use
  Company Number: HR-TEVA-510150ISR

PATIENT
  Age: 41 Year
  Sex: Male

DRUGS (19)
  1. AMOXICILLIN W/CLAVULANIC ACID [Suspect]
     Active Substance: AMOXICILLIN\CLAVULANIC ACID
     Indication: ESCHERICHIA INFECTION
     Route: 065
  2. THIOPENTAL SODIUM. [Suspect]
     Active Substance: THIOPENTAL SODIUM
     Indication: MAINTENANCE OF ANAESTHESIA
     Dosage: CONTINUOUS PERFUSION
     Route: 065
  3. ISOFLURANE. [Suspect]
     Active Substance: ISOFLURANE
     Indication: MAINTENANCE OF ANAESTHESIA
     Route: 055
  4. FENTANYL. [Concomitant]
     Active Substance: FENTANYL
     Indication: MAINTENANCE OF ANAESTHESIA
     Dosage: CONTINUOUS PERFUSION
     Route: 065
  5. METOCLOPRAMIDE. [Concomitant]
     Active Substance: METOCLOPRAMIDE
     Route: 065
  6. SUXAMETHONIUM CHLORIDE [Suspect]
     Active Substance: SUCCINYLCHOLINE CHLORIDE
     Indication: INDUCTION OF ANAESTHESIA
     Route: 065
  7. DEXAMETHASONE. [Suspect]
     Active Substance: DEXAMETHASONE
     Route: 065
  8. PANCURONIUM BROMIDE. [Concomitant]
     Active Substance: PANCURONIUM BROMIDE
     Indication: MUSCLE RELAXANT THERAPY
     Route: 065
  9. ESOMEPRAZOLE [Concomitant]
     Active Substance: ESOMEPRAZOLE
     Indication: PROPHYLAXIS AGAINST GASTROINTESTINAL ULCER
     Route: 065
  10. ERTAPENEM [Suspect]
     Active Substance: ERTAPENEM
     Indication: KLEBSIELLA INFECTION
     Route: 065
  11. URAPIDIL [Concomitant]
     Active Substance: URAPIDIL
     Indication: HYPERTENSION
     Route: 065
  12. THIOPENTAL SODIUM. [Suspect]
     Active Substance: THIOPENTAL SODIUM
     Indication: INDUCTION OF ANAESTHESIA
     Route: 065
  13. FUROSEMIDE. [Suspect]
     Active Substance: FUROSEMIDE
     Indication: DIURETIC THERAPY
     Route: 065
  14. DOPAMINE [Concomitant]
     Active Substance: DOPAMINE\DOPAMINE HYDROCHLORIDE
     Route: 065
  15. CARBAMAZEPINE. [Concomitant]
     Active Substance: CARBAMAZEPINE
     Indication: EPILEPSY
     Route: 065
  16. MIDAZOLAM [Concomitant]
     Active Substance: MIDAZOLAM\MIDAZOLAM HYDROCHLORIDE
     Route: 065
  17. CEFAZOLIN [Suspect]
     Active Substance: CEFAZOLIN
     Indication: ANTIBIOTIC PROPHYLAXIS
     Dosage: EVERY 3 HOURS DURING SURGERY
     Route: 065
  18. FENTANYL. [Concomitant]
     Active Substance: FENTANYL
     Indication: INDUCTION OF ANAESTHESIA
     Route: 065
  19. FENTANYL. [Concomitant]
     Active Substance: FENTANYL
     Route: 065

REACTIONS (3)
  - Renal failure acute [Unknown]
  - Rhabdomyolysis [Unknown]
  - Multi-organ failure [Fatal]
